FAERS Safety Report 21516817 (Version 2)
Quarter: 2022Q4

REPORT INFORMATION
  Report Type: Other
  Country: US (occurrence: None)
  Receive Date: 20221028
  Receipt Date: 20221122
  Transmission Date: 20230113
  Serious: Yes (Other)
  Sender: FDA-Public Use
  Company Number: US-ROCHE-3205895

PATIENT
  Sex: Female

DRUGS (2)
  1. XELODA [Suspect]
     Active Substance: CAPECITABINE
     Indication: Rectal cancer
     Dosage: TAKE 1 TABLET BY MOUTH TWICE A DAY D1-14, THEN 7D OFF WITH 1 OTHER CAPECITABINE PRESCRIPTION FOR 165
     Route: 048
  2. XELODA [Suspect]
     Active Substance: CAPECITABINE
     Indication: Colorectal cancer metastatic
     Dosage: TAKE 3 TABLET(S) BY MOUTH TWICE A DAY D1-14, THEN 7D OFF WITH 1 OTHER?CAPECITABINE PRESCRIPTION FOR
     Route: 048

REACTIONS (2)
  - Cerebrovascular accident [Unknown]
  - Facial paralysis [Unknown]
